FAERS Safety Report 18114109 (Version 6)
Quarter: 2021Q2

REPORT INFORMATION
  Report Type: Spontaneous
  Country: US (occurrence: US)
  Receive Date: 20200805
  Receipt Date: 20210626
  Transmission Date: 20210717
  Serious: Yes (Hospitalization, Other)
  Sender: FDA-Public Use
  Company Number: US-SHIRE-US202024953

PATIENT
  Age: 59 Year
  Sex: Female
  Weight: 62 kg

DRUGS (16)
  1. GATTEX [Suspect]
     Active Substance: TEDUGLUTIDE\WATER
     Indication: SHORT-BOWEL SYNDROME
     Dosage: 0.3005 UNIT UNKNOWN, 1X/DAY:QD
     Route: 058
     Dates: start: 20170628
  2. GATTEX [Suspect]
     Active Substance: TEDUGLUTIDE\WATER
     Indication: MALABSORPTION
     Dosage: 2.705 MILLIGRAM, QD
     Route: 058
     Dates: start: 201706, end: 201910
  3. GATTEX [Suspect]
     Active Substance: TEDUGLUTIDE\WATER
     Indication: MALABSORPTION
     Dosage: 2.705 MILLIGRAM, QD
     Route: 058
     Dates: start: 201706, end: 201910
  4. GATTEX [Suspect]
     Active Substance: TEDUGLUTIDE\WATER
     Indication: PARENTERAL NUTRITION
     Dosage: 2.7 MILLIGRAM, QD
     Route: 058
     Dates: start: 20170628
  5. IMODIUM [Concomitant]
     Active Substance: LOPERAMIDE HYDROCHLORIDE
     Dosage: 4 MILLIGRAM, BEFORE MEALS AND BEDTIME
     Route: 065
     Dates: start: 2012
  6. GATTEX [Suspect]
     Active Substance: TEDUGLUTIDE\WATER
     Indication: SHORT-BOWEL SYNDROME
     Dosage: 0.3005 UNIT UNKNOWN, 1X/DAY:QD
     Route: 058
     Dates: start: 20170628
  7. QUESTRAN [Concomitant]
     Active Substance: CHOLESTYRAMINE
     Dosage: 4 GRAM, AT BEDTIME
     Route: 065
     Dates: start: 20210422
  8. GATTEX [Suspect]
     Active Substance: TEDUGLUTIDE\WATER
     Indication: MALABSORPTION
     Dosage: 2.705 MILLIGRAM, QD
     Route: 058
     Dates: start: 201706, end: 201910
  9. GATTEX [Suspect]
     Active Substance: TEDUGLUTIDE\WATER
     Indication: SHORT-BOWEL SYNDROME
     Dosage: 0.3005 UNIT UNKNOWN, 1X/DAY:QD
     Route: 058
     Dates: start: 20170628
  10. GATTEX [Suspect]
     Active Substance: TEDUGLUTIDE\WATER
     Indication: SHORT-BOWEL SYNDROME
     Dosage: 0.3005 UNIT UNKNOWN, 1X/DAY:QD
     Route: 058
     Dates: start: 20170628
  11. GATTEX [Suspect]
     Active Substance: TEDUGLUTIDE\WATER
     Indication: PARENTERAL NUTRITION
     Dosage: 2.7 MILLIGRAM, QD
     Route: 058
     Dates: start: 20170628
  12. GATTEX [Suspect]
     Active Substance: TEDUGLUTIDE\WATER
     Indication: MALABSORPTION
     Dosage: 2.705 MILLIGRAM, QD
     Route: 058
     Dates: start: 201706, end: 201910
  13. MOBIC [Concomitant]
     Active Substance: MELOXICAM
     Dosage: 7.5 MILLIGRAM, QD
     Route: 065
     Dates: start: 20210406
  14. GATTEX [Suspect]
     Active Substance: TEDUGLUTIDE\WATER
     Indication: PARENTERAL NUTRITION
     Dosage: 2.7 MILLIGRAM, QD
     Route: 058
     Dates: start: 20170628
  15. GATTEX [Suspect]
     Active Substance: TEDUGLUTIDE\WATER
     Indication: PARENTERAL NUTRITION
     Dosage: 2.7 MILLIGRAM, QD
     Route: 058
     Dates: start: 20170628
  16. NEURONTIN [Concomitant]
     Active Substance: GABAPENTIN
     Dosage: 300 MILLIGRAM, AT BEDTIME
     Route: 065
     Dates: start: 20210519

REACTIONS (4)
  - Diarrhoea [Unknown]
  - Rectal polyp [Unknown]
  - Syringe issue [Unknown]
  - COVID-19 [Recovered/Resolved]

NARRATIVE: CASE EVENT DATE: 20200726
